FAERS Safety Report 5302564-2 (Version None)
Quarter: 2007Q2

REPORT INFORMATION
  Report Type: 
  Country: None (occurrence: None)
  Receive Date: 20070411
  Receipt Date: 20070328
  Transmission Date: 20071010
  Serious: Yes (Other)
  Sender: FDA-Public Use
  Company Number: WSDF_00632

PATIENT
  Age: 12 Year
  Sex: Male
  Weight: 74.7 kg

DRUGS (10)
  1. WINRHO [Suspect]
     Indication: IDIOPATHIC THROMBOCYTOPENIC PURPURA
     Dosage: 75 UG/KG ONCE IV
     Route: 042
     Dates: start: 20070323, end: 20070323
  2. WINRHO [Suspect]
     Indication: IDIOPATHIC THROMBOCYTOPENIC PURPURA
     Dates: start: 20070323, end: 20070323
  3. WINRHO [Suspect]
     Indication: IDIOPATHIC THROMBOCYTOPENIC PURPURA
     Dates: start: 20070323, end: 20070323
  4. VITAMIN CAP [Concomitant]
  5. SINGULAIR [Concomitant]
  6. ZINC [Concomitant]
  7. GRAPE SEED [Concomitant]
  8. CLARITIN [Concomitant]
  9. ALBUTEROL [Concomitant]
  10. HYDROCORTISONE [Concomitant]

REACTIONS (1)
  - INFUSION RELATED REACTION [None]
